FAERS Safety Report 6544089-2 (Version None)
Quarter: 2010Q1

REPORT INFORMATION
  Report Type: 
  Country: None (occurrence: None)
  Receive Date: 20100119
  Receipt Date: 20100119
  Transmission Date: 20100710
  Serious: Yes (Hospitalization, Other)
  Sender: FDA-Public Use
  Company Number: None

PATIENT
  Age: 50 Year
  Sex: Female
  Weight: 54.4316 kg

DRUGS (1)
  1. TOPAMAX [Suspect]
     Indication: MIGRAINE
     Dosage: 100MG OPD/PM PO
     Route: 048
     Dates: start: 20090201, end: 20090501

REACTIONS (14)
  - ALOPECIA [None]
  - ARRHYTHMIA [None]
  - BLOOD POTASSIUM ABNORMAL [None]
  - COGNITIVE DISORDER [None]
  - CONFUSIONAL STATE [None]
  - DISTURBANCE IN ATTENTION [None]
  - LETHARGY [None]
  - PALPITATIONS [None]
  - PARAESTHESIA [None]
  - PARASOMNIA [None]
  - PERSONALITY CHANGE [None]
  - SYNCOPE [None]
  - THIRST [None]
  - VISION BLURRED [None]
